FAERS Safety Report 10329321 (Version 1)
Quarter: 2014Q3

REPORT INFORMATION
  Report Type: Spontaneous
  Country: US (occurrence: US)
  Receive Date: 20140721
  Receipt Date: 20140721
  Transmission Date: 20150326
  Serious: No
  Sender: FDA-Public Use
  Company Number: US-B.I. PHARMACEUTICALS,INC./RIDGEFIELD-2014-BI-32098BP

PATIENT
  Age: 3 Year
  Sex: Female
  Weight: 15 kg

DRUGS (2)
  1. CHILDREN^S CHESTAL COUGH MEDICINE [Concomitant]
     Indication: NASOPHARYNGITIS
     Dosage: FORMULATION: ORAL SUSPENSION, DOSE PER APPLICATION: 2 TSPS
     Route: 048
     Dates: start: 20140709
  2. ZANTAC [Suspect]
     Active Substance: RANITIDINE HYDROCHLORIDE
     Indication: PRODUCT USED FOR UNKNOWN INDICATION
     Route: 048
     Dates: start: 20140710, end: 20140710

REACTIONS (1)
  - Accidental exposure to product by child [Recovered/Resolved]

NARRATIVE: CASE EVENT DATE: 20140710
